FAERS Safety Report 5913807-6 (Version None)
Quarter: 2008Q4

REPORT INFORMATION
  Report Type: 
  Country: None (occurrence: None)
  Receive Date: 20081009
  Receipt Date: 20080906
  Transmission Date: 20090506
  Serious: Yes (Death, Hospitalization)
  Sender: FDA-Public Use
  Company Number: PHHY2008SI23653

PATIENT
  Sex: Male

DRUGS (4)
  1. EXJADE [Suspect]
     Indication: ACUTE MYELOID LEUKAEMIA
     Dosage: 2000 MG/DAY
     Dates: start: 20080331, end: 20080615
  2. CYCLOCAPRON [Concomitant]
     Dosage: 1 IN 8 HOURS
  3. NOLPAZA [Concomitant]
     Dosage: 40 MG, QD
  4. ENAP [Concomitant]
     Dosage: 5 MG, QD

REACTIONS (2)
  - MULTI-ORGAN FAILURE [None]
  - SEPSIS [None]
